FAERS Safety Report 10408066 (Version 1)
Quarter: 2014Q3

REPORT INFORMATION
  Report Type: Other
  Country: FR (occurrence: FR)
  Receive Date: 20140825
  Receipt Date: 20140825
  Transmission Date: 20150326
  Serious: Yes (Hospitalization)
  Sender: FDA-Public Use
  Company Number: FR-MYLAN-2014M1001507

PATIENT

DRUGS (2)
  1. RISPERIDONE MYLAN 1 MG/ML, SOLUTION BUVABLE [Suspect]
     Active Substance: RISPERIDONE
     Dosage: 3 MG, QD
     Route: 048
     Dates: start: 20140728, end: 20140729
  2. RISPERIDONE MYLAN 1 MG/ML, SOLUTION BUVABL E [Suspect]
     Active Substance: RISPERIDONE
     Indication: SLEEP DISORDER
     Dosage: 0.3 MG, QD
     Route: 048
     Dates: start: 20140721, end: 20140727

REACTIONS (3)
  - Moaning [Recovered/Resolved]
  - Incorrect dose administered [Recovered/Resolved]
  - Somnolence [Recovered/Resolved]

NARRATIVE: CASE EVENT DATE: 20140730
